FAERS Safety Report 24889704 (Version 1)
Quarter: 2025Q1

REPORT INFORMATION
  Report Type: Spontaneous
  Country: US (occurrence: US)
  Receive Date: 20250127
  Receipt Date: 20250127
  Transmission Date: 20250408
  Serious: No
  Sender: APOTEX
  Company Number: US-APOTEX-2025AP001151

PATIENT

DRUGS (2)
  1. IMIQUIMOD [Suspect]
     Active Substance: IMIQUIMOD
     Indication: Metastatic malignant melanoma
     Route: 061
  2. TALIMOGENE LAHERPAREPVEC [Suspect]
     Active Substance: TALIMOGENE LAHERPAREPVEC
     Indication: Metastatic malignant melanoma
     Route: 026

REACTIONS (1)
  - Impetigo [Unknown]
